FAERS Safety Report 15291537 (Version 1)
Quarter: 2018Q3

REPORT INFORMATION
  Report Type: Report from Study
  Country: CA (occurrence: CA)
  Receive Date: 20180817
  Receipt Date: 20180817
  Transmission Date: 20181010
  Serious: Yes (Death)
  Sender: FDA-Public Use
  Company Number: CA-ACTELION-A-US2018-171542

PATIENT
  Age: 72 Year
  Sex: Female
  Weight: 56.24 kg

DRUGS (13)
  1. UPTRAVI [Suspect]
     Active Substance: SELEXIPAG
     Dosage: 200 MCG, BID
     Route: 048
     Dates: start: 20180426, end: 20180430
  2. ELIQUIS [Concomitant]
     Active Substance: APIXABAN
  3. TOLOXIN [Concomitant]
     Active Substance: DIGOXIN
  4. FUROSEMIDE. [Concomitant]
     Active Substance: FUROSEMIDE
  5. UPTRAVI [Suspect]
     Active Substance: SELEXIPAG
     Indication: PULMONARY ARTERIAL HYPERTENSION
     Dosage: 400 MCG, BID
     Route: 048
     Dates: start: 20180424, end: 20180424
  6. UPTRAVI [Suspect]
     Active Substance: SELEXIPAG
     Dosage: 200 MCG, BID
     Route: 048
     Dates: start: 20180411, end: 20180423
  7. ZOPICLONE [Concomitant]
     Active Substance: ZOPICLONE
  8. ADVAIR HFA [Concomitant]
     Active Substance: FLUTICASONE PROPIONATE\SALMETEROL XINAFOATE
  9. TRACLEER [Suspect]
     Active Substance: BOSENTAN
     Indication: PULMONARY ARTERIAL HYPERTENSION
     Dosage: 125 MG, BID
     Route: 048
     Dates: start: 20170916
  10. ALDACTONE [Concomitant]
     Active Substance: SPIRONOLACTONE
  11. VITAMIN D [Concomitant]
     Active Substance: CHOLECALCIFEROL
  12. COUMADIN [Concomitant]
     Active Substance: WARFARIN SODIUM
  13. ADCIRCA [Concomitant]
     Active Substance: TADALAFIL

REACTIONS (7)
  - Pain in extremity [Unknown]
  - Abdominal pain [Unknown]
  - Insomnia [Recovered/Resolved]
  - Headache [Unknown]
  - Diarrhoea [Unknown]
  - Death [Fatal]
  - Pain [Unknown]

NARRATIVE: CASE EVENT DATE: 20180424
